FAERS Safety Report 16747593 (Version 1)
Quarter: 2019Q3

REPORT INFORMATION
  Report Type: Spontaneous
  Country: GB (occurrence: GB)
  Receive Date: 20190827
  Receipt Date: 20190827
  Transmission Date: 20191005
  Serious: Yes (Other)
  Sender: FDA-Public Use
  Company Number: GB-MYLANLABS-2019M1079686

PATIENT
  Age: 38 Year
  Sex: Female
  Weight: 88.9 kg

DRUGS (1)
  1. BROMOCRIPTINE [Suspect]
     Active Substance: BROMOCRIPTINE
     Indication: HYPERPROLACTINAEMIA
     Dosage: 2.5 MILLIGRAM
     Route: 048
     Dates: start: 20190308, end: 20190308

REACTIONS (18)
  - Blood prolactin decreased [Unknown]
  - Hypoaesthesia [Recovered/Resolved with Sequelae]
  - Asthenia [Recovered/Resolved with Sequelae]
  - Vertigo [Unknown]
  - Constipation [Recovering/Resolving]
  - Tremor [Recovered/Resolved]
  - Loss of consciousness [Recovered/Resolved]
  - Drug titration error [Unknown]
  - Malaise [Recovered/Resolved]
  - Cold sweat [Unknown]
  - Dyspnoea [Unknown]
  - Vomiting [Unknown]
  - Hypotension [Unknown]
  - Somnolence [Unknown]
  - Dizziness [Unknown]
  - Irregular breathing [Recovered/Resolved]
  - Feeling of body temperature change [Recovered/Resolved]
  - Fatigue [Recovered/Resolved with Sequelae]

NARRATIVE: CASE EVENT DATE: 20190308
